FAERS Safety Report 15591870 (Version 1)
Quarter: 2018Q4

REPORT INFORMATION
  Report Type: Spontaneous
  Country: RU (occurrence: RU)
  Receive Date: 20181107
  Receipt Date: 20181107
  Transmission Date: 20190205
  Serious: Yes (Other)
  Sender: FDA-Public Use
  Company Number: RU-ASTRAZENECA-2018SF44896

PATIENT
  Age: 43 Year
  Sex: Female

DRUGS (1)
  1. BRILINTA [Suspect]
     Active Substance: TICAGRELOR
     Indication: STENT PLACEMENT
     Dosage: 90 MG
     Route: 048

REACTIONS (8)
  - Contusion [Unknown]
  - Vascular stent stenosis [Unknown]
  - Nasal congestion [Unknown]
  - Product use issue [Unknown]
  - Anaemia [Unknown]
  - Off label use [Unknown]
  - Uterine haemorrhage [Unknown]
  - Dyspnoea [Unknown]
